FAERS Safety Report 9193647 (Version 1)
Quarter: 2013Q1

REPORT INFORMATION
  Report Type: Spontaneous
  Country: US (occurrence: None)
  Receive Date: 20130325
  Receipt Date: 20130325
  Transmission Date: 20140127
  Serious: No
  Sender: FDA-Public Use
  Company Number: None

PATIENT
  Age: 38 Year
  Sex: Female

DRUGS (1)
  1. HYDROXYPROGESTERONE [Suspect]
     Dosage: 250MG WEEKLY IM
     Route: 030
     Dates: start: 20121008, end: 20130322

REACTIONS (2)
  - Burning sensation [None]
  - Pain [None]
